FAERS Safety Report 6666878-6 (Version None)
Quarter: 2010Q2

REPORT INFORMATION
  Report Type: 
  Country: None (occurrence: None)
  Receive Date: 20100401
  Receipt Date: 20100401
  Transmission Date: 20101027
  Serious: Yes (Hospitalization)
  Sender: FDA-Public Use
  Company Number: None

PATIENT
  Sex: Male
  Weight: 64.4108 kg

DRUGS (2)
  1. ALIMTA [Suspect]
     Indication: NON-SMALL CELL LUNG CANCER
     Dosage: 500 MG/M2 D1 Q 21 DAYS IV
     Route: 042
     Dates: start: 20100323
  2. ABRAXANE [Suspect]
     Indication: NON-SMALL CELL LUNG CANCER
     Dosage: 260MG/M2 D 1 Q 21 DAYS I.V.
     Route: 042
     Dates: start: 20100323

REACTIONS (6)
  - ANAEMIA [None]
  - EPISTAXIS [None]
  - HAEMATEMESIS [None]
  - HAEMOPTYSIS [None]
  - THROMBOCYTOPENIA [None]
  - VOMITING [None]
